FAERS Safety Report 6761110-7 (Version None)
Quarter: 2010Q2

REPORT INFORMATION
  Report Type: 
  Country: None (occurrence: None)
  Receive Date: 20100608
  Receipt Date: 20100526
  Transmission Date: 20101027
  Serious: Yes (Other)
  Sender: FDA-Public Use
  Company Number: NL-GENZYME-CLOF-1000987

PATIENT
  Sex: Male
  Weight: 190 kg

DRUGS (7)
  1. EVOLTRA [Suspect]
     Indication: ACUTE LEUKAEMIA
     Dosage: 22 MG, QDX5
     Route: 042
     Dates: start: 20100423, end: 20100427
  2. CYTARABINE [Suspect]
     Indication: ACUTE LEUKAEMIA
     Dosage: 2200 MG, QDX5
     Route: 042
     Dates: start: 20100423, end: 20100427
  3. AMSACRINE [Concomitant]
     Indication: DRUG USE FOR UNKNOWN INDICATION
     Dosage: 265 MG, UNK
     Route: 042
  4. CETIRIZINE HCL [Concomitant]
     Indication: DRUG USE FOR UNKNOWN INDICATION
     Dosage: 10 MG, UNK
     Route: 048
  5. ZOPICLON [Concomitant]
     Indication: DRUG USE FOR UNKNOWN INDICATION
     Dosage: 7.5 MG, UNK
     Route: 048
  6. FRAXI [Concomitant]
     Indication: DRUG USE FOR UNKNOWN INDICATION
  7. DEXRUM [Concomitant]
     Indication: DRUG USE FOR UNKNOWN INDICATION

REACTIONS (3)
  - PERICARDIAL EFFUSION [None]
  - STAPHYLOCOCCAL SEPSIS [None]
  - THROMBOSIS IN DEVICE [None]
